FAERS Safety Report 4816781-9 (Version None)
Quarter: 2005Q4

REPORT INFORMATION
  Report Type: 
  Country: None (occurrence: None)
  Receive Date: 20051031
  Receipt Date: 20051031
  Transmission Date: 20060501
  Serious: Yes (Other)
  Sender: FDA-Public Use
  Company Number: None

PATIENT
  Sex: Female
  Weight: 58 kg

DRUGS (22)
  1. LINEZOLID     600 MG/300 ML [Suspect]
     Indication: CONDITION AGGRAVATED
     Dosage: 600 MG   Q12HR  IV
     Route: 042
     Dates: start: 20050830, end: 20050907
  2. LINEZOLID     600 MG/300 ML [Suspect]
     Indication: CYSTIC FIBROSIS
     Dosage: 600 MG   Q12HR  IV
     Route: 042
     Dates: start: 20050830, end: 20050907
  3. MIRTAZAPINE [Suspect]
     Indication: DEPRESSION
     Dosage: 45 MG   QHS    PO
     Route: 048
     Dates: start: 20050830, end: 20050907
  4. MIRTAZAPINE [Suspect]
     Indication: INCREASED APPETITE
     Dosage: 45 MG   QHS    PO
     Route: 048
     Dates: start: 20050830, end: 20050907
  5. CEFTAZIDIME [Concomitant]
  6. AZITHROMYCIN [Concomitant]
  7. ASCORBIC ACID [Concomitant]
  8. METHOCARBAMOL [Concomitant]
  9. DOCUSATE [Concomitant]
  10. MIRALAX [Concomitant]
  11. VITAMIN SUPPLEMENT -A,D,E,K- [Concomitant]
  12. LORATADINE [Concomitant]
  13. DORNASE ALFA [Concomitant]
  14. ESOMEPRAZOLE [Concomitant]
  15. IBUPROFEN [Concomitant]
  16. COLISTIN [Concomitant]
  17. ADVAIR DISKUS 100/50 [Concomitant]
  18. TIOTROPIUM [Concomitant]
  19. ULTASE MT 20 [Concomitant]
  20. TOBRAMYCIN [Concomitant]
  21. 7% SALINE [Concomitant]
  22. NYSTATIN [Concomitant]

REACTIONS (10)
  - DYSARTHRIA [None]
  - ENTEROCOCCAL INFECTION [None]
  - HYPOTENSION [None]
  - MENTAL STATUS CHANGES [None]
  - PYREXIA [None]
  - SOMNOLENCE [None]
  - SPEECH DISORDER [None]
  - TACHYCARDIA [None]
  - THOUGHT BLOCKING [None]
  - TREMOR [None]
